FAERS Safety Report 5052379-8 (Version None)
Quarter: 2006Q3

REPORT INFORMATION
  Report Type: 
  Country: None (occurrence: None)
  Receive Date: 20060717
  Receipt Date: 20060707
  Transmission Date: 20061208
  Serious: Yes (Hospitalization)
  Sender: FDA-Public Use
  Company Number: 2006AC01254

PATIENT
  Age: 19137 Day
  Sex: Male

DRUGS (5)
  1. SELOKEEN ZOC [Suspect]
     Indication: ARRHYTHMIA
     Dosage: DRUG TEMPORARILY STOPPED FOR A CAG
     Route: 048
     Dates: start: 20060201
  2. SELOKEEN ZOC [Suspect]
     Route: 048
     Dates: end: 20060703
  3. SELOKEEN ZOC [Suspect]
     Route: 048
     Dates: start: 20060704, end: 20060704
  4. ASPRO CARDIO [Concomitant]
     Dosage: USED FOR A SHORT TIME
  5. ATORVASTATIN CALCIUM [Concomitant]
     Dosage: USED FOR A SHORT TIME

REACTIONS (3)
  - BLOOD PRESSURE INCREASED [None]
  - DIZZINESS [None]
  - HEART RATE IRREGULAR [None]
